FAERS Safety Report 7605508-3 (Version None)
Quarter: 2011Q3

REPORT INFORMATION
  Report Type: 
  Country: None (occurrence: None)
  Receive Date: 20110713
  Receipt Date: 20110627
  Transmission Date: 20111222
  Serious: No
  Sender: FDA-Public Use
  Company Number: US-PFIZER INC-2011092990

PATIENT
  Sex: Male

DRUGS (5)
  1. LIDOCAINE HYDROCHLORIDE [Suspect]
     Dosage: UNK
     Dates: start: 20110316, end: 20110316
  2. SODIUM BICARBONATE [Suspect]
     Dosage: 1 IN 1 D
     Dates: start: 20110316, end: 20110316
  3. COLLAGENASE CLOSTRIDIUM HISTOLYTICUM [Suspect]
     Indication: DUPUYTREN'S CONTRACTURE
     Dosage: 0.58 MG, 1 IN 1 D
     Route: 026
     Dates: start: 20110315, end: 20110315
  4. MARCAINE [Suspect]
     Dosage: 1 IN 1 D
     Dates: start: 20110316, end: 20110316
  5. COLLAGENASE CLOSTRIDIUM HISTOLYTICUM [Suspect]
     Dosage: 2 IN 1 D
     Route: 026
     Dates: start: 20110316, end: 20110316

REACTIONS (6)
  - LACERATION [None]
  - ECCHYMOSIS [None]
  - OEDEMA PERIPHERAL [None]
  - BLISTER [None]
  - HAEMORRHAGE SUBCUTANEOUS [None]
  - PAIN [None]
